FAERS Safety Report 4285514-X (Version None)
Quarter: 2004Q1

REPORT INFORMATION
  Report Type: 
  Country: None (occurrence: None)
  Receive Date: 20040130
  Receipt Date: 20040119
  Transmission Date: 20041129
  Serious: Yes (Disabling)
  Sender: FDA-Public Use
  Company Number: HQ4877528OCT2002

PATIENT
  Age: 50 Year
  Sex: Female

DRUGS (7)
  1. DIMETAPP [Suspect]
     Dosage: ORAL
     Route: 048
     Dates: start: 19990301
  2. ALKA-SELTZER (ACETYLSALICYLIC ACID/CITRIC ACID/SODIUM BICARBONATE) [Suspect]
  3. ALKA-SELTZER PLUS (ACETYLSALICYLIC ACID/CHLORPHENAMINE MALEATE/PHENYOP [Suspect]
  4. ALKA-SELTZER PLUS COLD (ACETYLSALICYLIC ACID/CHLORPHENAMINE MALEATE/PH [Suspect]
  5. DEXATRIM (CAFFEINE/PHENYLPROPANOLAMINE HYDROCHLORIDE) [Suspect]
     Dosage: ORAL
     Route: 048
  6. ROBITUSIN CF (GUAINFENESIN/DEXTROMETHRPHAN/PHENYLOPROPANOLAMINE, SYRUP [Suspect]
     Dosage: ORAL
     Route: 048
     Dates: start: 19980201
  7. ROBITUSIN CF (GUAINFENESIN/DEXTROMETHORPHAN/PHENYLOPROPANOLAMINE, SURY [Suspect]
     Dosage: 2 TABLESPOONS, ORAL
     Route: 048
     Dates: end: 19990220

REACTIONS (1)
  - HAEMORRHAGIC STROKE [None]
